FAERS Safety Report 7598353-9 (Version None)
Quarter: 2011Q3

REPORT INFORMATION
  Report Type: 
  Country: None (occurrence: None)
  Receive Date: 20110708
  Receipt Date: 20110629
  Transmission Date: 20111222
  Serious: Yes (Other)
  Sender: FDA-Public Use
  Company Number: PHHY2011US58793

PATIENT
  Sex: Male
  Weight: 76.02 kg

DRUGS (2)
  1. EXJADE [Suspect]
     Indication: CHRONIC LYMPHOCYTIC LEUKAEMIA
     Dosage: 1000 MG, DAILY
     Route: 048
     Dates: start: 20090901
  2. EXJADE [Suspect]
     Indication: RENAL FAILURE CHRONIC

REACTIONS (1)
  - INFECTION [None]
